FAERS Safety Report 19904734 (Version 1)
Quarter: 2021Q3

REPORT INFORMATION
  Report Type: Spontaneous
  Country: IL (occurrence: IL)
  Receive Date: 20210930
  Receipt Date: 20210930
  Transmission Date: 20211014
  Serious: Yes (Hospitalization)
  Sender: FDA-Public Use
  Company Number: IL-SHIRE-IL202034446

PATIENT
  Age: 10 Year
  Sex: Female
  Weight: 35 kg

DRUGS (14)
  1. GATTEX [Suspect]
     Active Substance: TEDUGLUTIDE\WATER
     Dosage: 0.18 MILLILITER
     Dates: start: 202006
  2. GATTEX [Suspect]
     Active Substance: TEDUGLUTIDE\WATER
     Indication: SHORT-BOWEL SYNDROME
     Dosage: 0.05 MICROGRAM/KILOGRAM
     Route: 065
     Dates: start: 202004
  3. GATTEX [Suspect]
     Active Substance: TEDUGLUTIDE\WATER
     Dosage: 0.18 MILLILITER
     Dates: start: 202006
  4. GATTEX [Suspect]
     Active Substance: TEDUGLUTIDE\WATER
     Dosage: 0.18 MILLILITER
     Dates: start: 202006
  5. GATTEX [Suspect]
     Active Substance: TEDUGLUTIDE\WATER
     Dosage: 0.8 MILLIGRAM
     Route: 065
     Dates: start: 20210701
  6. GATTEX [Suspect]
     Active Substance: TEDUGLUTIDE\WATER
     Indication: SHORT-BOWEL SYNDROME
     Dosage: 0.05 MICROGRAM/KILOGRAM
     Route: 065
     Dates: start: 202004
  7. GATTEX [Suspect]
     Active Substance: TEDUGLUTIDE\WATER
     Dosage: 0.8 MILLIGRAM
     Route: 065
     Dates: start: 20210701
  8. GATTEX [Suspect]
     Active Substance: TEDUGLUTIDE\WATER
     Indication: SHORT-BOWEL SYNDROME
     Dosage: 0.05 MICROGRAM/KILOGRAM
     Route: 065
     Dates: start: 202004
  9. GATTEX [Suspect]
     Active Substance: TEDUGLUTIDE\WATER
     Indication: SHORT-BOWEL SYNDROME
     Dosage: 0.05 MICROGRAM/KILOGRAM
     Route: 065
     Dates: start: 202004
  10. GATTEX [Suspect]
     Active Substance: TEDUGLUTIDE\WATER
     Dosage: 0.8 MILLIGRAM
     Route: 065
     Dates: start: 20210701
  11. LANTUS [Concomitant]
     Active Substance: INSULIN GLARGINE
     Indication: GASTRITIS
     Dosage: 30 MILLIGRAM, QD
     Route: 065
  12. IMMODIN [Concomitant]
     Indication: DIARRHOEA
     Dosage: 2 MILLIGRAM, QD
     Route: 065
  13. GATTEX [Suspect]
     Active Substance: TEDUGLUTIDE\WATER
     Dosage: 0.18 MILLILITER
     Dates: start: 202006
  14. GATTEX [Suspect]
     Active Substance: TEDUGLUTIDE\WATER
     Dosage: 0.8 MILLIGRAM
     Route: 065
     Dates: start: 20210701

REACTIONS (3)
  - Peripheral swelling [Recovered/Resolved]
  - Condition aggravated [Recovered/Resolved]
  - Cholelithiasis [Recovered/Resolved]

NARRATIVE: CASE EVENT DATE: 20200812
